FAERS Safety Report 5382797-X (Version None)
Quarter: 2007Q3

REPORT INFORMATION
  Report Type: 
  Country: None (occurrence: None)
  Receive Date: 20070710
  Receipt Date: 20070702
  Transmission Date: 20080115
  Serious: Yes (Hospitalization)
  Sender: FDA-Public Use
  Company Number: HQWYE875202JUL07

PATIENT
  Age: 39 Year
  Sex: Female

DRUGS (5)
  1. SIROLIMUS [Suspect]
     Indication: PROPHYLAXIS AGAINST GRAFT VERSUS HOST DISEASE
     Dosage: UNSPECIFIED
  2. MYCOPHENOLATE MOFETIL [Concomitant]
     Indication: PROPHYLAXIS AGAINST GRAFT VERSUS HOST DISEASE
     Dosage: UNSPECIFIED
  3. ANTITHYMOCYTE IMMUNOGLOBULIN [Concomitant]
  4. FLUDARABINE PHOSPHATE [Concomitant]
  5. MELPHALAN [Concomitant]

REACTIONS (2)
  - ENCEPHALOPATHY [None]
  - REVERSIBLE POSTERIOR LEUKOENCEPHALOPATHY SYNDROME [None]
